FAERS Safety Report 6179453-7 (Version None)
Quarter: 2009Q2

REPORT INFORMATION
  Report Type: 
  Country: None (occurrence: None)
  Receive Date: 20090505
  Receipt Date: 20090424
  Transmission Date: 20091009
  Serious: Yes (Hospitalization)
  Sender: FDA-Public Use
  Company Number: SE-B.I. PHARMACEUTICALS,INC./RIDGEFIELD-2009-SW-00110SW

PATIENT
  Age: 80 Year
  Sex: Female

DRUGS (3)
  1. PERSANTIN [Suspect]
     Route: 048
     Dates: end: 20081002
  2. ATENOLOL [Suspect]
     Indication: ESSENTIAL HYPERTENSION
     Dates: end: 20081002
  3. AMLODIPIN ACCORD [Concomitant]

REACTIONS (4)
  - ASTHENIA [None]
  - BRADYCARDIA [None]
  - EXERCISE TOLERANCE DECREASED [None]
  - FATIGUE [None]
